FAERS Safety Report 6423268-9 (Version None)
Quarter: 2009Q4

REPORT INFORMATION
  Report Type: 
  Country: None (occurrence: None)
  Receive Date: 20091102
  Receipt Date: 20091020
  Transmission Date: 20100525
  Serious: Yes (Hospitalization)
  Sender: FDA-Public Use
  Company Number: FR-ELI_LILLY_AND_COMPANY-FR200910004709

PATIENT
  Age: 61 Year
  Sex: Female
  Weight: 74 kg

DRUGS (6)
  1. BYETTA [Suspect]
     Indication: TYPE 2 DIABETES MELLITUS
     Dosage: 10 UG, 2/D
     Route: 058
     Dates: start: 20090331, end: 20090803
  2. CANDESARTAN CILEXETIL [Concomitant]
     Dosage: UNK, UNKNOWN
  3. ATENOLOL [Concomitant]
     Dosage: UNK, UNKNOWN
  4. GLIMEPIRIDE [Concomitant]
     Dosage: 1 MG, DAILY (1/D)
  5. METFORMIN HCL [Concomitant]
     Dosage: 1 G, 3/D
  6. ATORVASTATIN [Concomitant]
     Dosage: 80 MG, DAILY (1/D)

REACTIONS (8)
  - ASTHENIA [None]
  - DECREASED APPETITE [None]
  - DIARRHOEA [None]
  - GASTROINTESTINAL DISORDER [None]
  - HYPOGLYCAEMIA [None]
  - RENAL FAILURE [None]
  - RENAL TUBULAR NECROSIS [None]
  - VOMITING [None]
